FAERS Safety Report 19386209 (Version 1)
Quarter: 2021Q2

REPORT INFORMATION
  Report Type: Spontaneous
  Country: ES (occurrence: ES)
  Receive Date: 20210607
  Receipt Date: 20210607
  Transmission Date: 20210717
  Serious: Yes (Death)
  Sender: FDA-Public Use
  Company Number: ES-PFIZER INC-2021590791

PATIENT
  Age: 35 Year
  Sex: Male

DRUGS (3)
  1. HIBOR (BEMIPARIN SODIUM) [Suspect]
     Active Substance: BEMIPARIN SODIUM
     Indication: MESENTERIC ARTERY THROMBOSIS
     Dosage: 1 DF, 1X/DAY
     Route: 058
     Dates: start: 20201126
  2. COMIRNATY [Suspect]
     Active Substance: TOZINAMERAN
     Indication: COVID-19 IMMUNISATION
     Dosage: 1ST DOSE, SINGLE
     Route: 030
     Dates: start: 20210504, end: 20210504
  3. SUTENT [Suspect]
     Active Substance: SUNITINIB MALATE
     Dosage: 60 MG, CYCLIC (2 TIMES FOR WEEK EVERY 28 DAYS)
     Route: 048
     Dates: start: 20210205

REACTIONS (11)
  - Abdominal distension [Unknown]
  - Hyperhidrosis [Unknown]
  - Blood pressure increased [Unknown]
  - Fatigue [Unknown]
  - Back pain [Unknown]
  - Apathy [Unknown]
  - Hepatic haemorrhage [Fatal]
  - Post vaccination syndrome [Recovered/Resolved]
  - Malaise [Recovered/Resolved]
  - Abdominal pain [Unknown]
  - Pallor [Unknown]

NARRATIVE: CASE EVENT DATE: 20210504
